FAERS Safety Report 4710215-0 (Version None)
Quarter: 2005Q3

REPORT INFORMATION
  Report Type: 
  Country: None (occurrence: None)
  Receive Date: 20050709
  Receipt Date: 20050204
  Transmission Date: 20060218
  Serious: Yes (Death, Other)
  Sender: FDA-Public Use
  Company Number: US-MERCK-0502USA00513

PATIENT
  Sex: Female

DRUGS (1)
  1. VIOXX [Suspect]
     Route: 048
     Dates: start: 20001001, end: 20030601

REACTIONS (3)
  - ADVERSE EVENT [None]
  - DEATH [None]
  - MYOCARDIAL INFARCTION [None]
